FAERS Safety Report 7805846-5 (Version None)
Quarter: 2011Q4

REPORT INFORMATION
  Report Type: 
  Country: None (occurrence: None)
  Receive Date: 20111011
  Receipt Date: 20111003
  Transmission Date: 20120403
  Serious: No
  Sender: FDA-Public Use
  Company Number: US-BIOGENIDEC-2011BI038056

PATIENT
  Age: 48 Year
  Sex: Female

DRUGS (3)
  1. TYSABRI [Suspect]
     Indication: MULTIPLE SCLEROSIS
     Route: 042
     Dates: start: 20110822
  2. OXYCONTIN [Concomitant]
     Indication: PAIN
  3. FENTANYL [Concomitant]
     Indication: PAIN

REACTIONS (2)
  - VISION BLURRED [None]
  - THINKING ABNORMAL [None]
